FAERS Safety Report 9039602 (Version 1)
Quarter: 2013Q1

REPORT INFORMATION
  Report Type: Report from Study
  Country: US (occurrence: US)
  Receive Date: 20130129
  Receipt Date: 20130129
  Transmission Date: 20140127
  Serious: No
  Sender: FDA-Public Use
  Company Number: US-ABBOTT-12P-163-0937494-00

PATIENT
  Age: 73 Year
  Sex: Female

DRUGS (11)
  1. HUMIRA 40 MG/0.8 ML PEN [Suspect]
     Indication: PSORIASIS
     Dates: start: 201112
  2. UNKNOWN MEDICATION [Concomitant]
     Indication: PSORIASIS
  3. UNKNOWN MEDICATION [Concomitant]
     Indication: PRODUCT USED FOR UNKNOWN INDICATION
  4. UNKNOWN MEDICATION [Concomitant]
     Indication: DIABETES MELLITUS
  5. UNKNOWN MEDICATION [Concomitant]
     Indication: HYPERTENSION
  6. UNKNOWN MEDICATION [Concomitant]
     Indication: CARDIAC DISORDER
  7. UNKNOWN MEDICATION [Concomitant]
     Indication: ANTICOAGULANT THERAPY
  8. UNKNOWN MEDICATION [Concomitant]
     Indication: BLOOD CHOLESTEROL ABNORMAL
  9. UNKNOWN MEDICATION [Concomitant]
     Indication: THYROID DISORDER
  10. PSORIASIS SHAMPOO [Concomitant]
     Indication: PSORIASIS
  11. MEDICAL CREAM [Concomitant]
     Indication: PSORIASIS
     Dosage: SCALP

REACTIONS (3)
  - Device malfunction [Unknown]
  - Pruritus [Recovered/Resolved]
  - Psoriasis [Unknown]
